FAERS Safety Report 9475083 (Version 1)
Quarter: 2013Q3

REPORT INFORMATION
  Report Type: Spontaneous
  Country: US (occurrence: US)
  Receive Date: 20130824
  Receipt Date: 20130824
  Transmission Date: 20140515
  Serious: No
  Sender: FDA-Public Use
  Company Number: US-B.I. PHARMACEUTICALS,INC./RIDGEFIELD-2013-BI-25680BP

PATIENT
  Age: 62 Year
  Sex: Female

DRUGS (2)
  1. MICARDIS HCT [Suspect]
     Indication: HYPERTENSION
     Dosage: STRENGTH: 40 MG / 12.5 MG; DAILY DOSE: 40 MG/12.5 MG
     Route: 048
     Dates: start: 2007
  2. NAPROXEN [Concomitant]
     Indication: BACK PAIN
     Dosage: 1000 MG
     Route: 048
     Dates: start: 201306

REACTIONS (1)
  - Fracture [Not Recovered/Not Resolved]
